FAERS Safety Report 4339086-1 (Version None)
Quarter: 2004Q1

REPORT INFORMATION
  Report Type: 
  Country: None (occurrence: None)
  Receive Date: 20040329
  Receipt Date: 20040203
  Transmission Date: 20041129
  Serious: No
  Sender: FDA-Public Use
  Company Number: USA040258402

PATIENT
  Age: 15 Year
  Sex: Male
  Weight: 64 kg

DRUGS (3)
  1. STRATTERA [Suspect]
     Indication: ATTENTION DEFICIT/HYPERACTIVITY DISORDER
     Dosage: 120 MG/IN THE EVENING
     Dates: start: 20031001
  2. RISPERDAL [Concomitant]
  3. SEROQUEL [Concomitant]

REACTIONS (5)
  - DRUG INEFFECTIVE [None]
  - EAR INFECTION [None]
  - FATIGUE [None]
  - PRESCRIBED OVERDOSE [None]
  - SINUSITIS [None]
